FAERS Safety Report 19836536 (Version 1)
Quarter: 2021Q3

REPORT INFORMATION
  Report Type: Spontaneous
  Country: US (occurrence: US)
  Receive Date: 20210914
  Receipt Date: 20210914
  Transmission Date: 20211014
  Serious: No
  Sender: FDA-Public Use
  Company Number: US-ASTRAZENECA-2021A712632

PATIENT
  Age: 64 Year
  Sex: Male
  Weight: 111.1 kg

DRUGS (1)
  1. BYETTA [Suspect]
     Active Substance: EXENATIDE
     Indication: DIABETES MELLITUS
     Route: 058

REACTIONS (2)
  - Vascular injury [Unknown]
  - Product contamination with body fluid [Unknown]

NARRATIVE: CASE EVENT DATE: 20210902
